FAERS Safety Report 5669347-5 (Version None)
Quarter: 2008Q1

REPORT INFORMATION
  Report Type: 
  Country: None (occurrence: None)
  Receive Date: 20080317
  Receipt Date: 20080306
  Transmission Date: 20080703
  Serious: Yes (Hospitalization, Other)
  Sender: FDA-Public Use
  Company Number: PHFR2008GB01052

PATIENT
  Age: 36 Year
  Sex: Male

DRUGS (1)
  1. CLOZARIL [Suspect]
     Indication: SCHIZOPHRENIA
     Route: 048
     Dates: start: 20060912, end: 20061002

REACTIONS (4)
  - BLOOD PRESSURE ABNORMAL [None]
  - CYANOSIS [None]
  - PULSE ABNORMAL [None]
  - SEDATION [None]
